FAERS Safety Report 6144765-X (Version None)
Quarter: 2009Q2

REPORT INFORMATION
  Report Type: 
  Country: None (occurrence: None)
  Receive Date: 20090406
  Receipt Date: 20090324
  Transmission Date: 20091009
  Serious: Yes (Other)
  Sender: FDA-Public Use
  Company Number: CA-ELI_LILLY_AND_COMPANY-CA200903000995

PATIENT
  Sex: Male

DRUGS (4)
  1. FORTEO [Suspect]
     Dosage: UNK, UNK
     Dates: start: 20070501
  2. FORTEO [Suspect]
     Dates: end: 20090201
  3. CALCIUM                                 /N/A/ [Concomitant]
  4. VITAMIN D [Concomitant]

REACTIONS (2)
  - RENAL FAILURE [None]
  - RENAL MASS [None]
